FAERS Safety Report 7641520-6 (Version None)
Quarter: 2011Q3

REPORT INFORMATION
  Report Type: 
  Country: None (occurrence: None)
  Receive Date: 20110722
  Receipt Date: 20110708
  Transmission Date: 20111222
  Serious: Yes (Hospitalization)
  Sender: FDA-Public Use
  Company Number: 976701

PATIENT
  Age: 86 Year
  Sex: Male

DRUGS (7)
  1. (PREVISCAN /00261401/) [Suspect]
     Indication: PRODUCT USED FOR UNKNOWN INDICATION
     Dosage: 0.75 FINAL DOSE/DAY, ORAL
     Route: 048
     Dates: end: 20101227
  2. FUROSEMIDE [Concomitant]
  3. ACETAMINOPHEN [Concomitant]
  4. CLAFORAN [Suspect]
     Indication: ANTIBIOTIC THERAPY
     Dosage: INTRAVENOUS (NOT OTHERWISE SPECIFIED)
     Route: 042
     Dates: start: 20101227
  5. CIPROFLOXACIN HCL [Suspect]
     Indication: ANTIBIOTIC THERAPY
     Dosage: INTRAVENOUS (NOT OTHERWISE SPECIFIED)
     Route: 042
     Dates: start: 20101227
  6. ALLOPURINOL [Concomitant]
  7. PENTOSTATIN [Suspect]
     Indication: PRODUCT USED FOR UNKNOWN INDICATION
     Dosage: 1 DF DOSAGE FORM, 15 DAY, INTRAVENOUS (NOT OTHERWISE SPECIFIED)
     Route: 042
     Dates: start: 20101217

REACTIONS (10)
  - INTERNATIONAL NORMALISED RATIO INCREASED [None]
  - CONFUSIONAL STATE [None]
  - FEBRILE NEUTROPENIA [None]
  - DEHYDRATION [None]
  - GENERAL PHYSICAL HEALTH DETERIORATION [None]
  - CONJUNCTIVAL HAEMORRHAGE [None]
  - RENAL FAILURE ACUTE [None]
  - CARDIO-RESPIRATORY ARREST [None]
  - NEPHROPATHY TOXIC [None]
  - PYREXIA [None]
